FAERS Safety Report 7320988-9 (Version None)
Quarter: 2011Q1

REPORT INFORMATION
  Report Type: 
  Country: None (occurrence: None)
  Receive Date: 20110126
  Receipt Date: 20101217
  Transmission Date: 20110831
  Serious: Yes (Hospitalization)
  Sender: FDA-Public Use
  Company Number: A-NJ2010-42974

PATIENT
  Age: 41 Year
  Sex: Female

DRUGS (2)
  1. EPOPROSTENOL SODIUM [Suspect]
     Indication: PULMONARY ARTERIAL HYPERTENSION
     Dosage: 10 NG/KG, PER MIN, IV DRIP
     Route: 041
     Dates: start: 20101101, end: 20101210
  2. SILDENAFIL CITRATE [Concomitant]

REACTIONS (2)
  - NAUSEA [None]
  - VOMITING [None]
